FAERS Safety Report 9513266 (Version 1)
Quarter: 2013Q3

REPORT INFORMATION
  Report Type: Spontaneous
  Country: US (occurrence: US)
  Receive Date: 20130910
  Receipt Date: 20130910
  Transmission Date: 20140515
  Serious: Yes (Other)
  Sender: FDA-Public Use
  Company Number: CHPA2013US013908

PATIENT
  Age: 69 Year
  Sex: Female

DRUGS (4)
  1. VOLTAREN GEL [Suspect]
     Indication: OSTEOARTHRITIS
     Dosage: 8 MG, 2-3 TIMES A DAY
     Route: 061
     Dates: start: 201305
  2. BABY ASPIRIN [Concomitant]
     Dosage: 1 DF, QD
  3. CELEBREX [Concomitant]
     Dosage: 1 DF, QD
  4. OXYCODONE [Concomitant]
     Dosage: 1 DF, QD

REACTIONS (4)
  - Osteoarthritis [Unknown]
  - Drug administered at inappropriate site [Unknown]
  - Underdose [Unknown]
  - Therapeutic response unexpected [Unknown]
